FAERS Safety Report 23512043 (Version 2)
Quarter: 2024Q2

REPORT INFORMATION
  Report Type: Spontaneous
  Country: US (occurrence: US)
  Receive Date: 20240212
  Receipt Date: 20240615
  Transmission Date: 20240716
  Serious: No
  Sender: FDA-Public Use
  Company Number: US-SA-SAC20240207000901

PATIENT
  Age: 18 Year
  Sex: Male

DRUGS (2)
  1. DUPIXENT [Suspect]
     Active Substance: DUPILUMAB
     Indication: Eczema
     Dosage: 600 MG, 1X
     Route: 058
  2. DUPIXENT [Suspect]
     Active Substance: DUPILUMAB
     Dosage: 300 MG, QOW
     Route: 058
     Dates: end: 20240503

REACTIONS (6)
  - Fatigue [Recovered/Resolved]
  - Vision blurred [Recovered/Resolved]
  - Eczema [Unknown]
  - Erythema [Unknown]
  - Inflammation [Unknown]
  - Skin irritation [Unknown]

NARRATIVE: CASE EVENT DATE: 20240101
